FAERS Safety Report 17757170 (Version 1)
Quarter: 2020Q2

REPORT INFORMATION
  Report Type: Spontaneous
  Country: US (occurrence: US)
  Receive Date: 20200507
  Receipt Date: 20200507
  Transmission Date: 20200714
  Serious: No
  Sender: FDA-Public Use
  Company Number: US-ASTRAZENECA-2020SE59434

PATIENT
  Age: 68 Year
  Sex: Female

DRUGS (2)
  1. NEXIUM 24HR [Suspect]
     Active Substance: ESOMEPRAZOLE MAGNESIUM
     Indication: DYSPEPSIA
     Dosage: 20 MG, 1X/DAY [20MG ONCE A DAY BY MOUTH /SECOND HALF OF THE 28 DAYS]
     Route: 048
     Dates: start: 202004
  2. TYLENOL PM [Concomitant]
     Active Substance: ACETAMINOPHEN\DIPHENHYDRAMINE
     Dosage: DOSE UNKNOWN
     Route: 065

REACTIONS (3)
  - Condition aggravated [Unknown]
  - Back disorder [Unknown]
  - Arthralgia [Not Recovered/Not Resolved]

NARRATIVE: CASE EVENT DATE: 202004
